FAERS Safety Report 10053140 (Version 1)
Quarter: 2014Q2

REPORT INFORMATION
  Report Type: Spontaneous
  Country: DE (occurrence: DE)
  Receive Date: 20140402
  Receipt Date: 20140402
  Transmission Date: 20141212
  Serious: Yes (Other)
  Sender: FDA-Public Use
  Company Number: PHHY2014DE039049

PATIENT
  Sex: Male

DRUGS (2)
  1. AFINITOR [Suspect]
     Dosage: 10 MG, DAILY
     Dates: start: 201307
  2. AFINITOR [Suspect]
     Dosage: 5 MG, DAILY

REACTIONS (3)
  - Cerebrovascular accident [Unknown]
  - Fatigue [Unknown]
  - Stomatitis [Unknown]
